FAERS Safety Report 17855185 (Version 1)
Quarter: 2020Q2

REPORT INFORMATION
  Report Type: Spontaneous
  Country: US (occurrence: US)
  Receive Date: 20200603
  Receipt Date: 20200603
  Transmission Date: 20200714
  Serious: Yes (Hospitalization)
  Sender: FDA-Public Use
  Company Number: None

PATIENT
  Age: 32 Year
  Sex: Male
  Weight: 118 kg

DRUGS (15)
  1. IBUPROFEN. [Concomitant]
     Active Substance: IBUPROFEN
  2. METRONIDAZOLE. [Concomitant]
     Active Substance: METRONIDAZOLE
  3. ACETAMINOPHEN. [Concomitant]
     Active Substance: ACETAMINOPHEN
  4. METHOTREXATE. [Suspect]
     Active Substance: METHOTREXATE
     Dates: end: 20200518
  5. BACTRIM [Concomitant]
     Active Substance: SULFAMETHOXAZOLE\TRIMETHOPRIM
  6. BISACODYL. [Concomitant]
     Active Substance: BISACODYL
  7. CYCLOPHOSPHAMIDE (26271) [Suspect]
     Active Substance: CYCLOPHOSPHAMIDE
     Dates: end: 20200511
  8. MERCAPTOPURINE. [Suspect]
     Active Substance: MERCAPTOPURINE
     Dates: end: 20200522
  9. FLUCONAZOLE. [Concomitant]
     Active Substance: FLUCONAZOLE
  10. LEVOFLOXACIN. [Concomitant]
     Active Substance: LEVOFLOXACIN
  11. CYTARABINE. [Suspect]
     Active Substance: CYTARABINE
     Dates: end: 20200521
  12. RITUXIMAB (MOAB C2B8 ANTI CD20, CHIMERIC) [Suspect]
     Active Substance: RITUXIMAB
     Dates: end: 20200518
  13. ACYCLOVIR. [Concomitant]
     Active Substance: ACYCLOVIR
  14. MELATONIN [Concomitant]
     Active Substance: MELATONIN
  15. OMEPRAZOLE. [Concomitant]
     Active Substance: OMEPRAZOLE

REACTIONS (6)
  - Pyrexia [None]
  - Headache [None]
  - Neutrophil count decreased [None]
  - Somnolence [None]
  - Chills [None]
  - Fatigue [None]

NARRATIVE: CASE EVENT DATE: 20200521
